FAERS Safety Report 5269541-1 (Version None)
Quarter: 2007Q1

REPORT INFORMATION
  Report Type: 
  Country: None (occurrence: None)
  Receive Date: 20070320
  Receipt Date: 20070312
  Transmission Date: 20070707
  Serious: Yes (Life-Threatening, Other)
  Sender: FDA-Public Use
  Company Number: PHRM2007FR01012

PATIENT
  Age: 35 Year
  Sex: Female

DRUGS (8)
  1. COTAREG [Suspect]
     Indication: ARTERIAL DISORDER
     Route: 048
     Dates: end: 20060404
  2. COAPROVEL [Suspect]
     Indication: ARTERIAL DISORDER
     Route: 048
  3. KARDEGIC [Concomitant]
     Indication: ARTERIAL DISORDER
     Route: 048
  4. PLAVIX [Concomitant]
     Indication: ARTERIAL DISORDER
     Route: 048
  5. ZOCOR [Concomitant]
     Indication: ARTERIAL DISORDER
     Route: 048
  6. BUFLOMEDIL [Concomitant]
     Indication: ARTERIAL DISORDER
     Route: 048
  7. MEDIATENSYL [Concomitant]
     Indication: ARTERIAL DISORDER
     Route: 048
  8. GINKOR FORT [Concomitant]
     Indication: ARTERIAL DISORDER
     Route: 048

REACTIONS (10)
  - ABORTION INDUCED [None]
  - DRUG EXPOSURE DURING PREGNANCY [None]
  - KIDNEY ENLARGEMENT [None]
  - OLIGOHYDRAMNIOS [None]
  - PREGNANCY [None]
  - PULMONARY MALFORMATION [None]
  - RENAL FAILURE [None]
  - SKULL MALFORMATION [None]
  - ULTRASOUND KIDNEY ABNORMAL [None]
  - URINARY TRACT MALFORMATION [None]
